FAERS Safety Report 4342592-7 (Version None)
Quarter: 2004Q2

REPORT INFORMATION
  Report Type: 
  Country: None (occurrence: None)
  Receive Date: 20040416
  Receipt Date: 20040407
  Transmission Date: 20050107
  Serious: Yes (Death)
  Sender: FDA-Public Use
  Company Number: 2004AP01702

PATIENT
  Age: 75 Year
  Sex: Male

DRUGS (17)
  1. IRESSA [Suspect]
     Indication: LUNG SQUAMOUS CELL CARCINOMA STAGE UNSPECIFIED
     Dosage: 250 MG DAILY PO
     Route: 048
     Dates: start: 20031209, end: 20031212
  2. IRESSA [Suspect]
     Indication: NON-SMALL CELL LUNG CANCER
     Dosage: 250 MG DAILY PO
     Route: 048
     Dates: start: 20031209, end: 20031212
  3. IRESSA [Suspect]
     Indication: LUNG SQUAMOUS CELL CARCINOMA STAGE UNSPECIFIED
     Dosage: 250 MG DAILY PO
     Route: 048
     Dates: start: 20031214, end: 20031214
  4. IRESSA [Suspect]
     Indication: NON-SMALL CELL LUNG CANCER
     Dosage: 250 MG DAILY PO
     Route: 048
     Dates: start: 20031214, end: 20031214
  5. GLYCEOL [Concomitant]
  6. LAXOBERON [Concomitant]
  7. BIOFERMIN [Concomitant]
  8. ADONA (AC-17) [Concomitant]
  9. TRANSAMIN [Concomitant]
  10. PENFILL R [Concomitant]
  11. MITOMYCIN-C BULK POWDER [Concomitant]
  12. CISPLATIN [Concomitant]
  13. VINORELBINE TARTRATE [Concomitant]
  14. PACLITAXEL [Concomitant]
  15. GEMCITABINE [Concomitant]
  16. DOCETAXEL HYDRATE [Concomitant]
  17. RADIOTHERAPY [Concomitant]

REACTIONS (5)
  - DIABETES MELLITUS INADEQUATE CONTROL [None]
  - DIARRHOEA [None]
  - INTERSTITIAL LUNG DISEASE [None]
  - PLEURAL EFFUSION [None]
  - PNEUMONIA BACTERIAL [None]
